FAERS Safety Report 20457449 (Version 1)
Quarter: 2022Q1

REPORT INFORMATION
  Report Type: Spontaneous
  Country: CA (occurrence: CA)
  Receive Date: 20220210
  Receipt Date: 20220210
  Transmission Date: 20220423
  Serious: Yes (Hospitalization)
  Sender: FDA-Public Use
  Company Number: CA-CELGENE-CAN-20220201951

PATIENT
  Age: 79 Year
  Sex: Male
  Weight: 93 kg

DRUGS (20)
  1. LENALIDOMIDE [Suspect]
     Active Substance: LENALIDOMIDE
     Indication: Plasma cell myeloma
     Dosage: 15 MILLIGRAM
     Route: 048
     Dates: start: 202104
  2. DEXAMETHASONE [Concomitant]
     Active Substance: DEXAMETHASONE
     Indication: Product used for unknown indication
     Dosage: 20 TABLETS
     Route: 048
     Dates: start: 20211112
  3. DEXAMETHASONE [Concomitant]
     Active Substance: DEXAMETHASONE
     Dosage: 20 TABLETS
     Route: 048
     Dates: start: 20220203
  4. ACETAMINOPHEN [Concomitant]
     Active Substance: ACETAMINOPHEN
     Indication: Product used for unknown indication
     Dosage: TAKE 2 TABLETS BY MOUTH ONCE A WEEK
     Route: 048
     Dates: start: 20220203
  5. SANDOZ ONDANSETRON [Concomitant]
     Indication: Product used for unknown indication
     Dosage: 20 TABLETS TAKE ONE TABLETS MOUTH EVERY 8 HOURS
     Route: 048
     Dates: start: 20211112
  6. SANDOZ ONDANSETRON [Concomitant]
     Dosage: 20 TABLETS TAKE ONE TABLETS MOUTH EVERY 8 HOURS
     Route: 048
     Dates: start: 20220203
  7. SIMBRINZA [Concomitant]
     Active Substance: BRIMONIDINE TARTRATE\BRINZOLAMIDE
     Indication: Product used for unknown indication
     Dosage: 10 BOTTLES INSTILL 1 DROP INTO THE AFFECTED
     Route: 065
     Dates: start: 20220203
  8. TIMOLOL MALEATE\TRAVOPROST [Concomitant]
     Active Substance: TIMOLOL MALEATE\TRAVOPROST
     Indication: Product used for unknown indication
     Dosage: 5 BOTTLES?INSTILL ONE DROP INTO EFFECTED EYES
     Route: 065
     Dates: start: 20220203
  9. APIDRA SOLOSTAR [Concomitant]
     Active Substance: INSULIN GLULISINE
     Indication: Product used for unknown indication
     Dosage: 100 UNIT/ML
     Route: 065
     Dates: start: 20211112
  10. APIDRA SOLOSTAR [Concomitant]
     Active Substance: INSULIN GLULISINE
     Dosage: 100 UNIT/ML
     Route: 065
     Dates: start: 20220127
  11. HYDROCHLOROTHIAZIDE [Concomitant]
     Active Substance: HYDROCHLOROTHIAZIDE
     Indication: Product used for unknown indication
     Dosage: 30 TABLETS TAKE ONE TABLET BY MOUTH DAILY
     Route: 048
     Dates: start: 20220126
  12. AMLODIPINE MALEATE [Concomitant]
     Active Substance: AMLODIPINE MALEATE
     Indication: Product used for unknown indication
     Route: 048
     Dates: start: 20211112
  13. AMLODIPINE MALEATE [Concomitant]
     Active Substance: AMLODIPINE MALEATE
     Route: 048
     Dates: start: 20211123
  14. AMLODIPINE MALEATE [Concomitant]
     Active Substance: AMLODIPINE MALEATE
     Route: 048
     Dates: start: 20220126
  15. BASAGLAR KWIKPEN [Concomitant]
     Active Substance: INSULIN GLARGINE
     Indication: Product used for unknown indication
     Dosage: INJECT 40 UNITS AT BED TIME
     Route: 058
     Dates: start: 20220126
  16. BASAGLAR KWIKPEN [Concomitant]
     Active Substance: INSULIN GLARGINE
     Dosage: INJECT 40 UNITS AT BED TIME
     Route: 058
  17. DARZALEX [Concomitant]
     Active Substance: DARATUMUMAB
     Indication: Product used for unknown indication
     Dosage: 100MG/5ML VIAL
     Route: 041
     Dates: start: 20220111
  18. ATORVASTATIN [Concomitant]
     Active Substance: ATORVASTATIN
     Indication: Product used for unknown indication
     Route: 048
     Dates: start: 20211227
  19. TAMSULOSIN [Concomitant]
     Active Substance: TAMSULOSIN
     Indication: Product used for unknown indication
     Route: 048
     Dates: start: 20211112
  20. TAMSULOSIN [Concomitant]
     Active Substance: TAMSULOSIN
     Route: 048
     Dates: start: 20211123

REACTIONS (3)
  - COVID-19 pneumonia [Recovered/Resolved]
  - Confusional state [Recovered/Resolved]
  - Blood glucose increased [Recovered/Resolved]

NARRATIVE: CASE EVENT DATE: 20220112
